FAERS Safety Report 8853023 (Version 1)
Quarter: 2012Q4

REPORT INFORMATION
  Report Type: 
  Country: US (occurrence: US)
  Receive Date: 20121022
  Receipt Date: 20121022
  Transmission Date: 20130627
  Serious: Yes (Other)
  Sender: FDA-Public Use
  Company Number: US-ARROW-2012-18136

PATIENT
  Age: 75 Year
  Sex: Male

DRUGS (6)
  1. PRAMIPEXOLE [Suspect]
     Dosage: 0.375 mg/d titrated to 1.5 mg/d over 2 weeks
     Route: 065
  2. LOSARTAN [Concomitant]
     Indication: HYPERTENSION
     Route: 065
  3. CLOPIDOGREL [Concomitant]
     Indication: CORONARY ARTERY DISEASE
     Route: 065
  4. ATORVASTATIN [Concomitant]
     Indication: CORONARY ARTERY DISEASE
     Dosage: UNK
     Route: 065
  5. OMEPRAZOLE [Concomitant]
     Indication: GASTROOESOPHAGEAL REFLUX DISEASE
     Route: 065
  6. DONEPEZIL [Concomitant]
     Indication: DEMENTIA
     Route: 065

REACTIONS (2)
  - Hypersexuality [Recovered/Resolved]
  - Excessive masturbation [Recovered/Resolved]
